FAERS Safety Report 20806904 (Version 3)
Quarter: 2024Q1

REPORT INFORMATION
  Report Type: Report from Study
  Country: US (occurrence: US)
  Receive Date: 20220510
  Receipt Date: 20240117
  Transmission Date: 20240410
  Serious: Yes (Hospitalization, Other)
  Sender: FDA-Public Use
  Company Number: US-ABBVIE-22K-163-4386531-00

PATIENT
  Age: 51 Year
  Sex: Male

DRUGS (2)
  1. HUMIRA [Suspect]
     Active Substance: ADALIMUMAB
     Indication: Crohn^s disease
     Dosage: CITRATE FREE?FORM STRENGTH WAS 40 MILLIGRAMS
     Route: 058
  2. HUMIRA [Suspect]
     Active Substance: ADALIMUMAB
     Dosage: CITRATE FREE?FORM STRENGTH WAS 40 MILLIGRAMS
     Route: 058
     Dates: start: 20211119

REACTIONS (9)
  - Ileostomy [Unknown]
  - Procedural intestinal perforation [Unknown]
  - Illness [Recovering/Resolving]
  - Fatigue [Unknown]
  - Pseudopolyp [Unknown]
  - Stress [Unknown]
  - Cough [Unknown]
  - Oropharyngeal pain [Unknown]
  - Gastric infection [Unknown]

NARRATIVE: CASE EVENT DATE: 20220401
